FAERS Safety Report 9565617 (Version 1)
Quarter: 2013Q3

REPORT INFORMATION
  Report Type: Spontaneous
  Country: US (occurrence: US)
  Receive Date: 20130930
  Receipt Date: 20130930
  Transmission Date: 20140515
  Serious: No
  Sender: FDA-Public Use
  Company Number: US-COVIDIEN/TYCO HEALTHCARE/MALLINCKRODT-T201303830

PATIENT
  Age: 66 Year
  Sex: Female
  Weight: 68.27 kg

DRUGS (6)
  1. METHYLPHENIDATE HYDROCHLORIDE EXTENDED RELEASE TABLETS [Suspect]
     Indication: ATTENTION DEFICIT/HYPERACTIVITY DISORDER
     Dosage: 54 MG, QD
     Route: 048
     Dates: start: 201305, end: 201306
  2. PLAQUENIL                          /00072602/ [Concomitant]
     Indication: SYSTEMIC LUPUS ERYTHEMATOSUS
     Dosage: 200 MG, QD
  3. SIMVASTIN [Concomitant]
     Indication: PRODUCT USED FOR UNKNOWN INDICATION
     Dosage: UNK
  4. METOPROLOL [Concomitant]
     Indication: PRODUCT USED FOR UNKNOWN INDICATION
     Dosage: UNK
  5. PROZAC [Concomitant]
     Indication: PRODUCT USED FOR UNKNOWN INDICATION
  6. IMIPRAMINE                         /00053902/ [Concomitant]
     Indication: PRODUCT USED FOR UNKNOWN INDICATION

REACTIONS (4)
  - Drug level fluctuating [Recovered/Resolved]
  - Nausea [Recovered/Resolved]
  - Headache [Recovered/Resolved]
  - Hot flush [Recovered/Resolved]
